FAERS Safety Report 10235014 (Version 2)
Quarter: 2014Q2

REPORT INFORMATION
  Report Type: Spontaneous
  Country: ZA (occurrence: ZA)
  Receive Date: 20140613
  Receipt Date: 20140623
  Transmission Date: 20141212
  Serious: Yes (Other)
  Sender: FDA-Public Use
  Company Number: PHHY2014ZA070695

PATIENT
  Age: 11 Year
  Sex: Female

DRUGS (3)
  1. RITALIN LA [Suspect]
     Indication: ATTENTION DEFICIT/HYPERACTIVITY DISORDER
     Dosage: 20 MG, QD
     Dates: start: 2011
  2. RITALIN LA [Suspect]
     Dosage: 10 MG, BID
     Dates: start: 201301
  3. RITALIN LA [Suspect]
     Dosage: 20 MG, UNK

REACTIONS (4)
  - Intracranial pressure increased [Unknown]
  - Malaise [Unknown]
  - Nervousness [Unknown]
  - Drug ineffective [Unknown]
